FAERS Safety Report 25108727 (Version 1)
Quarter: 2025Q1

REPORT INFORMATION
  Report Type: Spontaneous
  Country: US (occurrence: US)
  Receive Date: 20250322
  Receipt Date: 20250322
  Transmission Date: 20250408
  Serious: Yes (Other)
  Sender: Unknown Manufacturer
  Company Number: US-KOANAAP-SML-US-2025-00169

PATIENT
  Age: 79 Year
  Sex: Female

DRUGS (7)
  1. APREMILAST [Suspect]
     Active Substance: APREMILAST
     Indication: Dermatomyositis
  2. METHOTREXATE [Suspect]
     Active Substance: METHOTREXATE
     Indication: Dermatomyositis
  3. HYDROXYCHLOROQUINE [Suspect]
     Active Substance: HYDROXYCHLOROQUINE
     Indication: Dermatomyositis
  4. MYCOPHENOLATE MOFETIL [Suspect]
     Active Substance: MYCOPHENOLATE MOFETIL
     Indication: Dermatomyositis
  5. HUMAN IMMUNOGLOBULIN G [Suspect]
     Active Substance: HUMAN IMMUNOGLOBULIN G
     Indication: Dermatomyositis
     Route: 042
  6. RITUXIMAB [Suspect]
     Active Substance: RITUXIMAB
     Indication: Dermatomyositis
  7. AZATHIOPRINE [Suspect]
     Active Substance: AZATHIOPRINE
     Indication: Dermatomyositis

REACTIONS (1)
  - Drug ineffective [Unknown]
